FAERS Safety Report 5206674-X (Version None)
Quarter: 2006Q4

REPORT INFORMATION
  Report Type: 
  Country: None (occurrence: None)
  Receive Date: 20061026
  Receipt Date: 20060919
  Transmission Date: 20070319
  Serious: Yes (Other)
  Sender: FDA-Public Use
  Company Number: 2006113914

PATIENT
  Age: 53 Year
  Sex: Female
  Weight: 49.8957 kg

DRUGS (3)
  1. LYRICA [Suspect]
     Indication: NEURALGIA
     Dosage: 75 MG (2 IN 1 D)
     Dates: start: 20060713
  2. PROVIGIL [Concomitant]
  3. DRUG, UNSPECIFIED [Concomitant]

REACTIONS (8)
  - CONFUSIONAL STATE [None]
  - DRUG INEFFECTIVE [None]
  - DYSARTHRIA [None]
  - ORTHOSTATIC HYPOTENSION [None]
  - PAIN [None]
  - SOMNOLENCE [None]
  - SPEECH DISORDER [None]
  - UNEVALUABLE EVENT [None]
